FAERS Safety Report 5570285-7 (Version None)
Quarter: 2007Q4

REPORT INFORMATION
  Report Type: 
  Country: None (occurrence: None)
  Receive Date: 20071219
  Receipt Date: 20071219
  Transmission Date: 20080405
  Serious: No
  Sender: FDA-Public Use
  Company Number: None

PATIENT
  Age: 27 Year
  Sex: Male
  Weight: 86.1834 kg

DRUGS (2)
  1. OXYCODONE HCL EXTENDED-RELEASE [Suspect]
     Indication: PAIN
     Dosage: 80MG TID
  2. OXYCODONE HCL EXTENDED-RELEASE [Suspect]
     Indication: ROAD TRAFFIC ACCIDENT
     Dosage: 80MG TID

REACTIONS (2)
  - DRUG EFFECT DECREASED [None]
  - PHARMACEUTICAL PRODUCT COMPLAINT [None]
